FAERS Safety Report 4661537-3 (Version None)
Quarter: 2005Q2

REPORT INFORMATION
  Report Type: 
  Country: None (occurrence: None)
  Receive Date: 20050511
  Receipt Date: 20050511
  Transmission Date: 20051028
  Serious: No
  Sender: FDA-Public Use
  Company Number: None

PATIENT
  Sex: Male
  Weight: 79 kg

DRUGS (2)
  1. CASODEX [Suspect]
     Dosage: PO , ONCE DAILY FOR TWO YEARS
     Route: 048
     Dates: start: 20050401
  2. PLACEBO [Suspect]

REACTIONS (4)
  - LUNG NEOPLASM MALIGNANT [None]
  - OEDEMA PERIPHERAL [None]
  - PAIN IN EXTREMITY [None]
  - SUPERIOR VENA CAVAL OCCLUSION [None]
